FAERS Safety Report 10578447 (Version 1)
Quarter: 2014Q4

REPORT INFORMATION
  Report Type: Spontaneous
  Country: US (occurrence: None)
  Receive Date: 20141107
  Receipt Date: 20141107
  Transmission Date: 20150529
  Serious: Yes (Hospitalization)
  Sender: FDA-Public Use
  Company Number: 1380136

PATIENT
  Age: 53 Year
  Sex: Male

DRUGS (2)
  1. DOXYCYCLINE. [Suspect]
     Active Substance: DOXYCYCLINE
     Indication: LYME DISEASE
     Dosage: 200 MG (100 MG, 2 IN 1 D)
  2. NAPROXEN (NAPROXEN) [Suspect]
     Active Substance: NAPROXEN
     Indication: LYME DISEASE

REACTIONS (2)
  - Drug interaction [None]
  - Gastrointestinal haemorrhage [None]
